FAERS Safety Report 8202498-X (Version None)
Quarter: 2012Q1

REPORT INFORMATION
  Report Type: 
  Country: None (occurrence: None)
  Receive Date: 20120312
  Receipt Date: 20120301
  Transmission Date: 20120608
  Serious: Yes (Hospitalization, Other)
  Sender: FDA-Public Use
  Company Number: US-JNJFOC-20120204968

PATIENT
  Sex: Female
  Weight: 81.65 kg

DRUGS (9)
  1. TRAMADOL HCL [Suspect]
     Indication: PAIN
     Dosage: AS NEEDED
     Route: 048
     Dates: start: 20120101
  2. ASACOL [Concomitant]
     Indication: COLITIS ULCERATIVE
     Route: 065
     Dates: start: 20110101
  3. CYCLOBENZAPRINE HCL [Concomitant]
     Indication: MUSCLE SPASMS
     Route: 048
  4. REMICADE [Suspect]
     Indication: COLITIS ULCERATIVE
     Route: 042
     Dates: start: 20110101
  5. OMEPRAZOLE [Concomitant]
     Indication: DYSPEPSIA
     Route: 048
  6. CITALOPRAM HYDROBROMIDE [Concomitant]
     Indication: DEPRESSION
     Route: 048
     Dates: start: 20110101
  7. BENTYL [Concomitant]
     Indication: COLITIS ULCERATIVE
     Route: 048
     Dates: start: 20110101
  8. NALTREXONE [Concomitant]
     Indication: IMMUNE SYSTEM DISORDER
     Route: 048
  9. VITAMIN D2 [Concomitant]
     Indication: NUTRITIONAL SUPPORT
     Route: 048

REACTIONS (9)
  - UNRESPONSIVE TO STIMULI [None]
  - HALLUCINATION [None]
  - DELIRIUM [None]
  - ABDOMINAL PAIN UPPER [None]
  - DECREASED APPETITE [None]
  - DEPRESSED LEVEL OF CONSCIOUSNESS [None]
  - MEMORY IMPAIRMENT [None]
  - FALL [None]
  - POOR VENOUS ACCESS [None]
